FAERS Safety Report 5199740-9 (Version None)
Quarter: 2007Q1

REPORT INFORMATION
  Report Type: 
  Country: None (occurrence: None)
  Receive Date: 20070105
  Receipt Date: 20060421
  Transmission Date: 20070707
  Serious: No
  Sender: FDA-Public Use
  Company Number: US-GLAXOSMITHKLINE-A0576041A

PATIENT
  Age: 59 Year
  Sex: Female

DRUGS (3)
  1. TAGAMET [Suspect]
     Dosage: 300MG FOUR TIMES PER DAY
     Route: 048
  2. PREVACID [Concomitant]
  3. FIORICET [Concomitant]

REACTIONS (3)
  - GASTROOESOPHAGEAL REFLUX DISEASE [None]
  - HYPERSENSITIVITY [None]
  - VOMITING [None]
